FAERS Safety Report 8513356-5 (Version None)
Quarter: 2012Q3

REPORT INFORMATION
  Report Type: 
  Country: None (occurrence: None)
  Receive Date: 20120716
  Receipt Date: 20120326
  Transmission Date: 20120928
  Serious: Yes (Other)
  Sender: FDA-Public Use
  Company Number: PHHY2012CA027810

PATIENT
  Sex: Female

DRUGS (14)
  1. VITAMIN D [Concomitant]
     Dosage: UNK UKN, UNK
  2. METOPROLOL [Concomitant]
     Dosage: UNK UKN, UNK
  3. VOLTAREN [Concomitant]
     Dosage: UNK UKN, UNK
  4. ASPIRIN [Concomitant]
     Dosage: UNK UKN, UNK
  5. AMLODIPINE [Concomitant]
     Dosage: UNK UKN, UNK
  6. PREDNISONE [Concomitant]
     Dosage: UNK UKN, UNK
  7. PANTOPRAZOLE SODIUM [Concomitant]
     Dosage: UNK UKN, UNK
  8. SIMVASTATIN [Concomitant]
     Dosage: UNK UKN, UNK
     Dates: end: 20120323
  9. ALENDRONATE SODIUM [Concomitant]
     Dosage: UNK UKN, UNK
  10. NYSTATIN [Concomitant]
     Dosage: UNK UKN, UNK
  11. NAPROSYN [Concomitant]
     Dosage: UNK UKN, UNK
  12. COLACE [Concomitant]
     Dosage: UNK UKN, UNK
  13. EXELON [Suspect]
     Indication: DEMENTIA ALZHEIMER'S TYPE
     Dosage: 4.6 MG/24 HOURS
     Route: 062
     Dates: start: 20120227
  14. TYLENOL ARTHRITIS [Concomitant]
     Dosage: UNK UKN, UNK

REACTIONS (3)
  - ABDOMINAL PAIN UPPER [None]
  - DIARRHOEA [None]
  - POSTOPERATIVE WOUND COMPLICATION [None]
